FAERS Safety Report 9770589 (Version 3)
Quarter: 2014Q2

REPORT INFORMATION
  Report Type: Spontaneous
  Country: US (occurrence: US)
  Receive Date: 20131218
  Receipt Date: 20140416
  Transmission Date: 20141212
  Serious: Yes (Hospitalization)
  Sender: FDA-Public Use
  Company Number: US-GLAXOSMITHKLINE-A1051064A

PATIENT
  Age: 65 Year
  Sex: Female

DRUGS (4)
  1. ADVAIR HFA [Suspect]
     Indication: OBSTRUCTIVE AIRWAYS DISORDER
     Dosage: 1PUFF TWICE PER DAY
     Route: 055
     Dates: start: 201306
  2. IPRATROPIUM [Concomitant]
  3. XOPENEX [Concomitant]
  4. LEVOTHYROXINE [Concomitant]

REACTIONS (5)
  - Loss of consciousness [Not Recovered/Not Resolved]
  - Dyspnoea [Not Recovered/Not Resolved]
  - Product quality issue [Not Recovered/Not Resolved]
  - Drug ineffective [Not Recovered/Not Resolved]
  - Depressed level of consciousness [Not Recovered/Not Resolved]
